FAERS Safety Report 12350963 (Version 1)
Quarter: 2016Q2

REPORT INFORMATION
  Report Type: Spontaneous
  Country: US (occurrence: US)
  Receive Date: 20160419
  Receipt Date: 20160419
  Transmission Date: 20160815
  Serious: Yes (Death)
  Sender: FDA-Public Use
  Company Number: US-MALLINCKRODT-T201601255

PATIENT
  Age: 42 Year
  Sex: Female

DRUGS (1)
  1. GABLOFEN [Suspect]
     Active Substance: BACLOFEN
     Indication: MUSCLE SPASTICITY
     Dosage: 199 MCG/DAY
     Route: 037

REACTIONS (2)
  - Sepsis [Fatal]
  - Cellulitis [Unknown]

NARRATIVE: CASE EVENT DATE: 201603
